FAERS Safety Report 5077631-1 (Version None)
Quarter: 2006Q3

REPORT INFORMATION
  Report Type: 
  Country: None (occurrence: None)
  Receive Date: 20060810
  Receipt Date: 20060509
  Transmission Date: 20061208
  Serious: No
  Sender: FDA-Public Use
  Company Number: US-GLAXOSMITHKLINE-A0604853A

PATIENT
  Age: 49 Year
  Sex: Female

DRUGS (8)
  1. PAXIL [Suspect]
     Indication: MAJOR DEPRESSION
     Dosage: 20MG PER DAY
     Route: 048
     Dates: start: 20060317, end: 20060319
  2. WELLBUTRIN [Concomitant]
  3. XANAX [Concomitant]
  4. PROVIGIL [Concomitant]
  5. ABILIFY [Concomitant]
  6. AMBIEN [Concomitant]
  7. LORTAB [Concomitant]
  8. ADVIL [Concomitant]

REACTIONS (2)
  - NAUSEA [None]
  - VOMITING [None]
